FAERS Safety Report 12689650 (Version 1)
Quarter: 2016Q3

REPORT INFORMATION
  Report Type: Spontaneous
  Country: US (occurrence: None)
  Receive Date: 20160825
  Receipt Date: 20160825
  Transmission Date: 20161109
  Serious: Yes (Other)
  Sender: FDA-Public Use
  Company Number: None

PATIENT
  Age: 52 Year
  Sex: Female
  Weight: 92.99 kg

DRUGS (1)
  1. VENLAFAXINE ER 75MG [Suspect]
     Active Substance: VENLAFAXINE HYDROCHLORIDE
     Indication: MAJOR DEPRESSION
     Dosage: 75MG #90/90DAY 3 PILLS DAILY MOUTH
     Route: 048
     Dates: start: 20120110

REACTIONS (3)
  - Anxiety [None]
  - Drug intolerance [None]
  - Product substitution issue [None]
